FAERS Safety Report 10069094 (Version 1)
Quarter: 2014Q2

REPORT INFORMATION
  Report Type: Report from Study
  Country: BR (occurrence: BR)
  Receive Date: 20140409
  Receipt Date: 20140409
  Transmission Date: 20141212
  Serious: Yes (Hospitalization)
  Sender: FDA-Public Use
  Company Number: PHHY2014BR040670

PATIENT
  Sex: Male
  Weight: 42.8 kg

DRUGS (10)
  1. EXELON PATCH [Suspect]
     Indication: DEMENTIA ALZHEIMER^S TYPE
     Dosage: 4.6 MG/24 HOURS (9 MG DAILY)
     Route: 062
  2. OMEPRAZOLE [Suspect]
     Indication: GASTRITIS
     Dosage: 20 MG, BID
  3. APO-FOLIC ACID [Suspect]
     Dosage: 5 MG, QD
  4. ERYTHROPOIETIN [Suspect]
     Indication: ANAEMIA
     Dosage: 1 DF, QW3
     Dates: start: 201302
  5. NORIPURUM [Suspect]
     Indication: ANAEMIA
     Dosage: 1000 MG, EVERY 15 DAYS
     Dates: start: 201302
  6. VITAMIIN C [Concomitant]
     Dosage: 500 MG, UNK
  7. CARVEDILOL [Concomitant]
     Dosage: 3.125 MG, UNK
  8. B COMPLEX [Concomitant]
     Dosage: UNK UKN, UNK
  9. AAS [Concomitant]
     Dosage: UNK UKN, UNK
  10. DORMEX//BROTIZOLAM [Concomitant]
     Dosage: UNK UKN, UNK

REACTIONS (2)
  - Cardiovascular disorder [Not Recovered/Not Resolved]
  - Abdominal pain [Not Recovered/Not Resolved]
